FAERS Safety Report 15468651 (Version 1)
Quarter: 2018Q4

REPORT INFORMATION
  Report Type: Report from Study
  Country: AR (occurrence: AR)
  Receive Date: 20181005
  Receipt Date: 20181005
  Transmission Date: 20190204
  Serious: Yes (Death, Hospitalization)
  Sender: FDA-Public Use
  Company Number: AR-SAKK-2018SA274301AA

PATIENT
  Age: 27 Year
  Sex: Male

DRUGS (1)
  1. INSULIN GLARGINE [Suspect]
     Active Substance: INSULIN GLARGINE
     Indication: TYPE 1 DIABETES MELLITUS
     Dosage: 80 IU, QD
     Route: 058
     Dates: start: 20160610, end: 20180608

REACTIONS (4)
  - Cardio-respiratory arrest [Fatal]
  - Vomiting [Fatal]
  - Ketoacidosis [Fatal]
  - Dehydration [Fatal]

NARRATIVE: CASE EVENT DATE: 20180607
